FAERS Safety Report 18443699 (Version 1)
Quarter: 2020Q4

REPORT INFORMATION
  Report Type: Other
  Country: IL (occurrence: IL)
  Receive Date: 20201030
  Receipt Date: 20201030
  Transmission Date: 20210114
  Serious: Yes (Other)
  Sender: FDA-Public Use
  Company Number: IL-ROCHE-2702045

PATIENT

DRUGS (5)
  1. PEMBROLIZUMAB. [Suspect]
     Active Substance: PEMBROLIZUMAB
     Indication: METASTATIC NEOPLASM
     Route: 065
  2. NIVOLUMAB [Suspect]
     Active Substance: NIVOLUMAB
     Indication: METASTATIC NEOPLASM
     Route: 065
  3. IPILIMUMAB [Suspect]
     Active Substance: IPILIMUMAB
     Indication: METASTATIC NEOPLASM
     Route: 065
  4. ATEZOLIZUMAB. [Suspect]
     Active Substance: ATEZOLIZUMAB
     Indication: METASTATIC NEOPLASM
     Route: 065
  5. DURVALUMAB. [Suspect]
     Active Substance: DURVALUMAB
     Indication: METASTATIC NEOPLASM
     Route: 065

REACTIONS (9)
  - General physical health deterioration [Unknown]
  - Skin toxicity [Unknown]
  - Uveitis [Unknown]
  - Oedema [Unknown]
  - Adrenal insufficiency [Unknown]
  - Colitis [Unknown]
  - Hepatitis [Unknown]
  - Thyroid disorder [Unknown]
  - Arthritis [Unknown]
